FAERS Safety Report 9701779 (Version 2)
Quarter: 2013Q4

REPORT INFORMATION
  Report Type: Report from Study
  Country: US (occurrence: US)
  Receive Date: 20131121
  Receipt Date: 20131127
  Transmission Date: 20140711
  Serious: Yes (Death, Hospitalization, Other)
  Sender: FDA-Public Use
  Company Number: US-ACTELION-A-US2013-91196

PATIENT
  Age: 72 Year
  Sex: Female

DRUGS (15)
  1. TRACLEER [Suspect]
     Indication: PULMONARY ARTERIAL HYPERTENSION
     Dosage: 125 UNK, UNK
     Route: 048
     Dates: start: 20130415, end: 20131020
  2. TRACLEER [Suspect]
     Dosage: 62.5 MG, BID
     Route: 048
     Dates: start: 20130312, end: 20130414
  3. COUMADIN [Suspect]
     Dosage: UNK
     Dates: end: 20130320
  4. REVATIO [Concomitant]
     Dosage: 20 MG, TID
  5. AMLODIPINE [Concomitant]
     Dosage: 10 MG, OD
  6. AMLODIPINE [Concomitant]
     Dosage: 10 UNK, UNK
  7. JANUVIA [Concomitant]
     Dosage: 50 MG, OD
  8. LASIX [Concomitant]
     Dosage: 40 MG, OD
  9. LEVEMIR [Concomitant]
     Dosage: 25 U, OD
  10. LOSARTAN [Concomitant]
     Dosage: 100 MG, OD
  11. METOPROLOL TARTRATE [Concomitant]
     Dosage: 100 MG, OD
  12. SIMVASTATIN [Concomitant]
     Dosage: 40 MG, OD
  13. ZEMPLAR [Concomitant]
     Dosage: 1 MG, OD
  14. VITAMIN D [Concomitant]
  15. ASPIRIN [Concomitant]
     Dosage: 81 MG, UNK

REACTIONS (17)
  - Pulmonary hypertension [Fatal]
  - Condition aggravated [Fatal]
  - Hypoxia [Fatal]
  - Atrial fibrillation [Unknown]
  - Renal failure chronic [Unknown]
  - Mental status changes [Unknown]
  - Cardio-respiratory arrest [Fatal]
  - Respiratory distress [Fatal]
  - Feeling abnormal [Fatal]
  - Fluid retention [Fatal]
  - Swelling face [Fatal]
  - Asthenia [Fatal]
  - Bradycardia [Fatal]
  - Apnoea [Fatal]
  - Gastrointestinal haemorrhage [Unknown]
  - Back pain [Unknown]
  - Dyspnoea [Fatal]
